FAERS Safety Report 9951738 (Version 1)
Quarter: 2014Q1

REPORT INFORMATION
  Report Type: Spontaneous
  Country: US (occurrence: US)
  Receive Date: 20140304
  Receipt Date: 20140304
  Transmission Date: 20141002
  Serious: No
  Sender: FDA-Public Use
  Company Number: US-ABBVIE-13P-163-1071885-00

PATIENT
  Age: 86 Year
  Sex: Female
  Weight: 58.57 kg

DRUGS (6)
  1. HUMIRA [Suspect]
     Indication: RHEUMATOID ARTHRITIS
     Dates: start: 201204
  2. METHOTREXATE [Concomitant]
     Indication: RHEUMATOID ARTHRITIS
  3. VITAMIN B12 [Concomitant]
     Indication: PRODUCT USED FOR UNKNOWN INDICATION
  4. LABETALOL [Concomitant]
     Indication: BLOOD PRESSURE
  5. FOLIC ACID [Concomitant]
     Indication: PROPHYLAXIS
  6. PRAVASTATIN [Concomitant]
     Indication: BLOOD CHOLESTEROL

REACTIONS (1)
  - Injection site pain [Not Recovered/Not Resolved]
